FAERS Safety Report 23835429 (Version 3)
Quarter: 2024Q2

REPORT INFORMATION
  Report Type: Spontaneous
  Country: US (occurrence: US)
  Receive Date: 20240509
  Receipt Date: 20240607
  Transmission Date: 20240716
  Serious: Yes (Hospitalization, Other)
  Sender: FDA-Public Use
  Company Number: US-EXELIXIS-CABO-24076671

PATIENT
  Age: 67 Year
  Sex: Male

DRUGS (13)
  1. OPDIVO [Suspect]
     Active Substance: NIVOLUMAB
     Indication: Adrenal gland cancer
     Dosage: UNK, Q4WEEKS
     Dates: start: 20240405
  2. CABOMETYX [Suspect]
     Active Substance: CABOZANTINIB S-MALATE
     Indication: Adrenal gland cancer
     Dates: start: 20240405, end: 20240423
  3. CABOMETYX [Suspect]
     Active Substance: CABOZANTINIB S-MALATE
     Dates: start: 202405
  4. ASPIRIN [Concomitant]
     Active Substance: ASPIRIN
     Indication: Product used for unknown indication
  5. ATORVASTATIN [Concomitant]
     Active Substance: ATORVASTATIN
     Indication: Product used for unknown indication
  6. COREG [Concomitant]
     Active Substance: CARVEDILOL
     Indication: Product used for unknown indication
  7. FERROUS SULFATE [Concomitant]
     Active Substance: FERROUS SULFATE
     Indication: Product used for unknown indication
  8. PROCARDIA [Concomitant]
     Active Substance: NIFEDIPINE
     Indication: Product used for unknown indication
  9. OMEPRAZOLE [Concomitant]
     Active Substance: DONEPEZIL HYDROCHLORIDE\OMEPRAZOLE\OMEPRAZOLE MAGNESIUM
     Indication: Product used for unknown indication
  10. ZOFRAN [Concomitant]
     Active Substance: ONDANSETRON HYDROCHLORIDE
     Indication: Product used for unknown indication
  11. TRAZODONE [Concomitant]
     Active Substance: TRAZODONE HYDROCHLORIDE
     Indication: Product used for unknown indication
  12. LASIX [Concomitant]
     Active Substance: FUROSEMIDE
     Indication: Product used for unknown indication
     Dates: start: 20240430
  13. LOPERAMIDE [Concomitant]
     Active Substance: LOPERAMIDE
     Indication: Product used for unknown indication

REACTIONS (16)
  - Hepatic cancer [Recovered/Resolved]
  - Intra-abdominal fluid collection [Recovered/Resolved]
  - Pleural effusion [Not Recovered/Not Resolved]
  - Taste disorder [Not Recovered/Not Resolved]
  - Abdominal discomfort [Recovering/Resolving]
  - Nausea [Recovered/Resolved]
  - Diarrhoea [Not Recovered/Not Resolved]
  - Rash [Recovered/Resolved]
  - Peripheral swelling [Recovered/Resolved]
  - Off label use [Unknown]
  - Renal impairment [Unknown]
  - Fatigue [Unknown]
  - Diarrhoea [Not Recovered/Not Resolved]
  - Decreased appetite [Unknown]
  - Blood iron decreased [Unknown]
  - Haemoglobin decreased [Recovering/Resolving]

NARRATIVE: CASE EVENT DATE: 20240501
